FAERS Safety Report 26131948 (Version 1)
Quarter: 2025Q4

REPORT INFORMATION
  Report Type: Spontaneous
  Country: EU (occurrence: EU)
  Receive Date: 20251208
  Receipt Date: 20251208
  Transmission Date: 20260118
  Serious: Yes (Hospitalization, Other)
  Sender: TAKEDA
  Company Number: EU-PEI-202500025225

PATIENT
  Age: 31 Year
  Sex: Female
  Weight: 52 kg

DRUGS (4)
  1. LISDEXAMFETAMINE DIMESYLATE [Suspect]
     Active Substance: LISDEXAMFETAMINE DIMESYLATE
     Indication: Attention deficit hyperactivity disorder
     Dosage: 50 MILLIGRAM, QD
     Dates: start: 202403, end: 202404
  2. LISDEXAMFETAMINE DIMESYLATE [Suspect]
     Active Substance: LISDEXAMFETAMINE DIMESYLATE
     Dosage: 30 MILLIGRAM, QD
     Dates: start: 202408, end: 202410
  3. INFLUVAC TETRA [Suspect]
     Active Substance: INFLUENZA VIRUS VACCINE QUADRIVALENT TYPE A+B
     Indication: Immunisation
     Dosage: UNK
     Dates: start: 202409, end: 202409
  4. BOOSTRIX [Suspect]
     Active Substance: TETANUS TOXOID, REDUCED DIPHTHERIA TOXOID AND ACELLULAR PERTUSSIS VACCINE ADSORBED, TDAP
     Indication: Immunisation
     Dosage: UNK
     Dates: start: 202408, end: 202408

REACTIONS (2)
  - Cervical incompetence [Recovered/Resolved]
  - Exposure during pregnancy [Unknown]

NARRATIVE: CASE EVENT DATE: 20240901
